FAERS Safety Report 20543442 (Version 1)
Quarter: 2022Q1

REPORT INFORMATION
  Report Type: Spontaneous
  Country: US (occurrence: None)
  Receive Date: 20220302
  Receipt Date: 20220302
  Transmission Date: 20220424
  Serious: Yes (Other)
  Sender: FDA-Public Use
  Company Number: US-Blueprint Medicines Corporation-SP-US-2022-000543

PATIENT
  Age: 82 Year
  Sex: Female

DRUGS (1)
  1. AYVAKIT [Suspect]
     Active Substance: AVAPRITINIB
     Indication: Gastrointestinal stromal tumour
     Route: 048
     Dates: start: 20200909

REACTIONS (4)
  - Anaphylactic reaction [Not Recovered/Not Resolved]
  - Aphonia [Not Recovered/Not Resolved]
  - Food allergy [Not Recovered/Not Resolved]
  - Aphasia [Not Recovered/Not Resolved]
